FAERS Safety Report 18507850 (Version 1)
Quarter: 2020Q4

REPORT INFORMATION
  Report Type: Spontaneous
  Country: US (occurrence: US)
  Receive Date: 20201116
  Receipt Date: 20201116
  Transmission Date: 20210114
  Serious: Yes (Death, Hospitalization, Other)
  Sender: FDA-Public Use
  Company Number: US-PURDUE-USA-2020-0174094

PATIENT
  Sex: Male

DRUGS (1)
  1. HYDROCODONE BITARTRATE (SIMILAR TO NDA 206627) [Suspect]
     Active Substance: HYDROCODONE BITARTRATE
     Indication: PRODUCT USED FOR UNKNOWN INDICATION
     Dosage: UNK
     Route: 048

REACTIONS (8)
  - Chronic obstructive pulmonary disease [None]
  - Intestinal resection [None]
  - Pancreatectomy [None]
  - Abdominal pain upper [None]
  - Insomnia [None]
  - Diarrhoea [None]
  - Vomiting [None]
  - Death [Fatal]
